FAERS Safety Report 17064492 (Version 1)
Quarter: 2019Q4

REPORT INFORMATION
  Report Type: Spontaneous
  Country: NL (occurrence: NL)
  Receive Date: 20191122
  Receipt Date: 20191122
  Transmission Date: 20200122
  Serious: Yes (Life-Threatening)
  Sender: FDA-Public Use
  Company Number: NL-JNJFOC-20191122525

PATIENT
  Age: 23 Year
  Sex: Female
  Weight: 74 kg

DRUGS (5)
  1. HUMIRA [Concomitant]
     Active Substance: ADALIMUMAB
     Dosage: HAD THE LAST INJECTION 8 DAYS AGO
  2. VITAMINE B12 [Concomitant]
     Active Substance: CYANOCOBALAMIN
  3. HUMIRA [Concomitant]
     Active Substance: ADALIMUMAB
     Dosage: HAD THE LAST INJECTION 8 DAYS AGO
  4. STELARA [Suspect]
     Active Substance: USTEKINUMAB
     Indication: CROHN^S DISEASE
     Route: 042
     Dates: start: 20191029, end: 20191030
  5. MERCAPTOPURINE. [Concomitant]
     Active Substance: MERCAPTOPURINE

REACTIONS (1)
  - Hypersensitivity [Recovered/Resolved]

NARRATIVE: CASE EVENT DATE: 20191029
